FAERS Safety Report 4583935-9 (Version None)
Quarter: 2005Q1

REPORT INFORMATION
  Report Type: 
  Country: None (occurrence: None)
  Receive Date: 20050216
  Receipt Date: 20050104
  Transmission Date: 20050727
  Serious: No
  Sender: FDA-Public Use
  Company Number: US-GLAXOSMITHKLINE-A0539286A

PATIENT
  Age: 73 Year
  Sex: Male

DRUGS (3)
  1. AVODART [Suspect]
     Indication: BENIGN PROSTATIC HYPERPLASIA
     Dosage: .5MG PER DAY
     Route: 048
  2. FLOMAX [Concomitant]
  3. CELEBREX [Concomitant]

REACTIONS (1)
  - POLLAKIURIA [None]
